FAERS Safety Report 8082137-1 (Version None)
Quarter: 2012Q1

REPORT INFORMATION
  Report Type: 
  Country: None (occurrence: None)
  Receive Date: 20120130
  Receipt Date: 20120120
  Transmission Date: 20120608
  Serious: Yes (Hospitalization)
  Sender: FDA-Public Use
  Company Number: JP-AMGEN-JPNCT2011069035

PATIENT
  Age: 74 Year
  Sex: Male

DRUGS (7)
  1. FLUOROURACIL [Concomitant]
     Dosage: 3450 MG, UNK
     Route: 041
     Dates: start: 20110414
  2. FLUOROURACIL [Concomitant]
     Indication: COLORECTAL CANCER
     Dosage: 575 MG, Q2WK
     Route: 040
     Dates: start: 20110414
  3. ISOVORIN [Concomitant]
     Indication: COLORECTAL CANCER
     Dosage: 288 MG, Q2WK
     Route: 041
     Dates: start: 20110414, end: 20111122
  4. FLUOROURACIL [Concomitant]
     Dosage: 2800 MG, UNK
     Route: 041
     Dates: end: 20111122
  5. PANITUMUMAB [Suspect]
     Indication: COLORECTAL CANCER
     Dosage: 290 MG, Q2WK
     Route: 041
     Dates: start: 20110428, end: 20111122
  6. OXALIPLATIN [Concomitant]
     Indication: COLORECTAL CANCER
     Dosage: UNK UNK, Q2WK
     Route: 041
     Dates: start: 20110414, end: 20110811
  7. FLUOROURACIL [Concomitant]
     Dosage: 475 MG, UNK
     Route: 040
     Dates: end: 20111122

REACTIONS (2)
  - INTERSTITIAL LUNG DISEASE [None]
  - NEUROPATHY PERIPHERAL [None]
